FAERS Safety Report 4624220-6 (Version None)
Quarter: 2005Q1

REPORT INFORMATION
  Report Type: 
  Country: None (occurrence: None)
  Receive Date: 20050330
  Receipt Date: 20050330
  Transmission Date: 20050727
  Serious: No
  Sender: FDA-Public Use
  Company Number: None

PATIENT
  Age: 69 Year
  Sex: Female
  Weight: 77.1115 kg

DRUGS (1)
  1. LOVENOX [Suspect]
     Dosage: 80 MG Q.12
     Dates: start: 20041205, end: 20041213

REACTIONS (10)
  - ARTHRALGIA [None]
  - BLOOD CREATININE INCREASED [None]
  - COAGULOPATHY [None]
  - DEHYDRATION [None]
  - FALL [None]
  - HAEMATOCRIT DECREASED [None]
  - HAEMORRHAGE [None]
  - MEDICATION ERROR [None]
  - RETROPERITONEAL HAEMATOMA [None]
  - WHITE BLOOD CELL COUNT INCREASED [None]
